FAERS Safety Report 8186959-8 (Version None)
Quarter: 2012Q1

REPORT INFORMATION
  Report Type: 
  Country: None (occurrence: None)
  Receive Date: 20120306
  Receipt Date: 20120301
  Transmission Date: 20120608
  Serious: Yes (Other)
  Sender: FDA-Public Use
  Company Number: US-PFIZER INC-2012056284

PATIENT
  Age: 95 Year
  Sex: Female

DRUGS (1)
  1. DETROL [Suspect]
     Indication: URINARY INCONTINENCE
     Dosage: UNK
     Route: 048

REACTIONS (1)
  - AMNESIA [None]
